FAERS Safety Report 25218782 (Version 1)
Quarter: 2025Q2

REPORT INFORMATION
  Report Type: Report from Study
  Country: CA (occurrence: CA)
  Receive Date: 20250421
  Receipt Date: 20250421
  Transmission Date: 20250716
  Serious: Yes (Other)
  Sender: TEVA
  Company Number: CA-TEVA-VS-3323858

PATIENT
  Age: 85 Year
  Sex: Female

DRUGS (5)
  1. RAMIPRIL [Suspect]
     Active Substance: RAMIPRIL
     Indication: Product used for unknown indication
     Route: 065
  2. SILIQ [Suspect]
     Active Substance: BRODALUMAB
     Indication: Psoriasis
     Dosage: SILIQ 2 SINGLE USE PREFILLED SYRINGES, THERAPY DURATION: 730 WITHOUT UNIT
     Route: 058
  3. SILIQ [Suspect]
     Active Substance: BRODALUMAB
     Indication: Psoriasis
     Dosage: SILIQ 2 SINGLE USE PREFILLED SYRINGES
     Route: 058
  4. SILIQ [Suspect]
     Active Substance: BRODALUMAB
     Indication: Psoriasis
     Dosage: SILIQ 2 SINGLE USE PREFILLED SYRINGES, DOSE FORM: SOLUTION SUBCUTANEOUS,
     Route: 058
  5. BISOPROLOL [Concomitant]
     Active Substance: BISOPROLOL
     Indication: Product used for unknown indication
     Route: 065

REACTIONS (6)
  - Neoplasm malignant [Not Recovered/Not Resolved]
  - Head and neck cancer metastatic [Not Recovered/Not Resolved]
  - Expired product administered [Not Recovered/Not Resolved]
  - Tooth extraction [Not Recovered/Not Resolved]
  - Blood pressure increased [Not Recovered/Not Resolved]
  - Brain cancer metastatic [Not Recovered/Not Resolved]
